FAERS Safety Report 6604143-3 (Version None)
Quarter: 2010Q1

REPORT INFORMATION
  Report Type: 
  Country: None (occurrence: None)
  Receive Date: 20100226
  Receipt Date: 20090619
  Transmission Date: 20100710
  Serious: No
  Sender: FDA-Public Use
  Company Number: A0789557A

PATIENT
  Sex: Male

DRUGS (2)
  1. LAMICTAL CD [Suspect]
     Indication: DRUG USE FOR UNKNOWN INDICATION
     Dosage: 100MG UNKNOWN
     Route: 048
  2. WELLBUTRIN XL [Suspect]
     Indication: DRUG USE FOR UNKNOWN INDICATION
     Dosage: 150MG UNKNOWN
     Route: 048

REACTIONS (3)
  - FATIGUE [None]
  - MALAISE [None]
  - MEDICATION ERROR [None]
